FAERS Safety Report 11751714 (Version 1)
Quarter: 2015Q4

REPORT INFORMATION
  Report Type: Report from Study
  Country: US (occurrence: US)
  Receive Date: 20151118
  Receipt Date: 20151118
  Transmission Date: 20160304
  Serious: Yes (Other)
  Sender: FDA-Public Use
  Company Number: PHHO2010US11185

PATIENT
  Age: 43 Year
  Sex: Female
  Weight: 59 kg

DRUGS (1)
  1. GILENYA [Suspect]
     Active Substance: FINGOLIMOD HYDROCHLORIDE
     Indication: PRIMARY PROGRESSIVE MULTIPLE SCLEROSIS
     Dosage: 0.5 MG, UNK
     Route: 048
     Dates: start: 20100323

REACTIONS (12)
  - Grandiosity [Unknown]
  - Mood altered [Unknown]
  - Increased appetite [Unknown]
  - Cyclothymic disorder [Not Recovered/Not Resolved]
  - Energy increased [Unknown]
  - Suicidal ideation [Recovering/Resolving]
  - Tearfulness [Unknown]
  - Hypomania [Unknown]
  - Insomnia [Unknown]
  - Depressed mood [Recovering/Resolving]
  - Impatience [Unknown]
  - Weight increased [Unknown]

NARRATIVE: CASE EVENT DATE: 20100630
